FAERS Safety Report 9802969 (Version 1)
Quarter: 2014Q1

REPORT INFORMATION
  Report Type: Spontaneous
  Country: US (occurrence: None)
  Receive Date: 20140106
  Receipt Date: 20140106
  Transmission Date: 20141002
  Serious: Yes (Life-Threatening, Disabling, Other)
  Sender: FDA-Public Use
  Company Number: None

PATIENT
  Age: 52 Year
  Sex: Male
  Weight: 145.15 kg

DRUGS (1)
  1. LIVALO [Suspect]
     Indication: BLOOD CHOLESTEROL
     Dosage: 1 PILL
     Route: 048
     Dates: start: 20120720, end: 20130418

REACTIONS (13)
  - Fatigue [None]
  - Myalgia [None]
  - Asthenia [None]
  - Dyspnoea [None]
  - Weight increased [None]
  - General physical health deterioration [None]
  - Pollakiuria [None]
  - Polydipsia [None]
  - Blood triglycerides increased [None]
  - Arrhythmia [None]
  - Diabetes mellitus [None]
  - Hypertension [None]
  - Personality change [None]
